FAERS Safety Report 8530808-2 (Version None)
Quarter: 2012Q3

REPORT INFORMATION
  Report Type: 
  Country: None (occurrence: None)
  Receive Date: 20120723
  Receipt Date: 20120717
  Transmission Date: 20120928
  Serious: No
  Sender: FDA-Public Use
  Company Number: US-PFIZER INC-2012063259

PATIENT
  Sex: Male

DRUGS (4)
  1. METOPROLOL [Concomitant]
     Dosage: UNK
  2. BUSPAR [Concomitant]
     Dosage: UNK
  3. VISTARIL [Suspect]
     Indication: ANXIETY
     Dosage: 25 MG, 3X/DAY
     Route: 048
  4. STRATTERA [Concomitant]
     Dosage: UNK

REACTIONS (1)
  - CARDIAC DISORDER [None]
